FAERS Safety Report 12825302 (Version 1)
Quarter: 2016Q4

REPORT INFORMATION
  Report Type: Spontaneous
  Country: GB (occurrence: GB)
  Receive Date: 20161007
  Receipt Date: 20161007
  Transmission Date: 20170207
  Serious: Yes (Death, Hospitalization, Other)
  Sender: FDA-Public Use
  Company Number: GB-MYLANLABS-2016M1042788

PATIENT

DRUGS (3)
  1. AZATHIOPRINE. [Suspect]
     Active Substance: AZATHIOPRINE
     Indication: PRODUCT USED FOR UNKNOWN INDICATION
     Dosage: 150 MG
     Route: 065
  2. METHYLPREDNISOLONE. [Suspect]
     Active Substance: METHYLPREDNISOLONE
     Indication: PRODUCT USED FOR UNKNOWN INDICATION
     Dosage: 150 MG
     Route: 065
  3. PREDNISOLONE. [Suspect]
     Active Substance: PREDNISOLONE
     Indication: PRODUCT USED FOR UNKNOWN INDICATION
     Dosage: REDUCED TO 4MG
     Route: 065

REACTIONS (13)
  - Cytomegalovirus infection [Unknown]
  - Intra-abdominal fluid collection [Unknown]
  - Oesophagitis [Unknown]
  - Deep vein thrombosis [Unknown]
  - Haemoptysis [Unknown]
  - Cholestasis [Unknown]
  - Oesophageal rupture [Fatal]
  - Respiratory failure [Fatal]
  - Upper gastrointestinal haemorrhage [Unknown]
  - Maternal exposure during pregnancy [Unknown]
  - Duodenal ulcer [Unknown]
  - Tracheo-oesophageal fistula [Fatal]
  - Pancreatitis [Unknown]
